FAERS Safety Report 24533937 (Version 2)
Quarter: 2024Q4

REPORT INFORMATION
  Report Type: Spontaneous
  Country: RU (occurrence: RU)
  Receive Date: 20241022
  Receipt Date: 20241125
  Transmission Date: 20250115
  Serious: Yes (Hospitalization, Other)
  Sender: BAYER HEALTHCARE PHARMACEUTICALS INC.
  Company Number: RU-BAYER-2024A146507

PATIENT
  Age: 23 Year
  Sex: Female
  Weight: 75 kg

DRUGS (7)
  1. YAZ [Suspect]
     Active Substance: DROSPIRENONE\ETHINYL ESTRADIOL
     Indication: Polycystic ovarian syndrome
     Dosage: UNK
     Route: 048
     Dates: start: 20240713
  2. YAZ [Suspect]
     Active Substance: DROSPIRENONE\ETHINYL ESTRADIOL
     Indication: Acne
  3. YAZ [Suspect]
     Active Substance: DROSPIRENONE\ETHINYL ESTRADIOL
     Indication: Heavy menstrual bleeding
  4. YAZ [Suspect]
     Active Substance: DROSPIRENONE\ETHINYL ESTRADIOL
     Indication: Hyperandrogenism
  5. Coldrex [Concomitant]
     Indication: Respiratory tract infection
     Dosage: 2 PACKETS A DAY
     Dates: start: 20240820, end: 20240822
  6. AMOXICILLIN [Concomitant]
     Active Substance: AMOXICILLIN
     Dosage: 500 MG, BID
     Route: 048
     Dates: start: 20240825, end: 20240830
  7. AZITHROMYCIN ANHYDROUS [Concomitant]
     Active Substance: AZITHROMYCIN ANHYDROUS
     Dosage: 500 MG, QD
     Route: 048
     Dates: start: 20240831, end: 20240902

REACTIONS (22)
  - Pulmonary embolism [None]
  - Dyspnoea at rest [None]
  - Acute right ventricular failure [None]
  - Respiratory failure [None]
  - Pneumonia [None]
  - Hydrothorax [None]
  - Pericardial effusion [None]
  - Cardiac failure chronic [None]
  - Pulmonary artery occlusion [None]
  - Cyanosis [None]
  - Impaired quality of life [None]
  - Body temperature increased [None]
  - Respiratory tract infection viral [None]
  - Cough [None]
  - Haemoptysis [None]
  - Dyspnoea [None]
  - Oropharyngeal pain [None]
  - Sneezing [None]
  - Nausea [None]
  - Off label use [None]
  - Dyspnoea [None]
  - Oxygen saturation decreased [None]

NARRATIVE: CASE EVENT DATE: 20240820
